FAERS Safety Report 9431988 (Version 2)
Quarter: 2014Q1

REPORT INFORMATION
  Report Type: Spontaneous
  Country: PA (occurrence: PA)
  Receive Date: 20130731
  Receipt Date: 20140128
  Transmission Date: 20141002
  Serious: Yes (Other)
  Sender: FDA-Public Use
  Company Number: PA-SANOFI-AVENTIS-2013SA073967

PATIENT
  Age: 35 Year
  Sex: Female
  Weight: 83 kg

DRUGS (7)
  1. LANTUS SOLOSTAR [Suspect]
     Indication: TYPE 1 DIABETES MELLITUS
     Dosage: DOSE:35 UNIT(S)
     Route: 058
     Dates: start: 2000, end: 20130729
  2. LANTUS SOLOSTAR [Suspect]
     Indication: TYPE 1 DIABETES MELLITUS
     Dosage: DOSE:35 UNIT(S)
     Route: 058
  3. SOLOSTAR [Suspect]
     Indication: DEVICE THERAPY
     Dates: start: 2000
  4. HUMALOG [Suspect]
     Indication: TYPE 1 DIABETES MELLITUS
     Dosage: DOSE: 1 UNIT/10G OF CHO BEFORE EACH MEAL
     Route: 058
     Dates: start: 1999
  5. LISINOPRIL [Suspect]
     Indication: HYPERTENSION
     Route: 065
     Dates: start: 2009, end: 20130710
  6. ALDOMET [Suspect]
     Indication: HYPERTENSION
     Route: 048
     Dates: start: 20130711
  7. FOLIC ACID/IRON [Suspect]
     Indication: PREGNANCY
     Route: 048
     Dates: start: 20130711

REACTIONS (3)
  - Vaginal haemorrhage [Recovered/Resolved]
  - Exposure during pregnancy [Unknown]
  - VIIth nerve paralysis [Unknown]
